FAERS Safety Report 6405053-7 (Version None)
Quarter: 2009Q4

REPORT INFORMATION
  Report Type: 
  Country: None (occurrence: None)
  Receive Date: 20091019
  Receipt Date: 20091008
  Transmission Date: 20100525
  Serious: Yes (Hospitalization)
  Sender: FDA-Public Use
  Company Number: IT-PFIZER INC-2009280818

PATIENT

DRUGS (1)
  1. ATORVASTATIN CALCIUM [Suspect]

REACTIONS (4)
  - ASTHENIA [None]
  - DYSPNOEA [None]
  - HYPOTHYROIDISM [None]
  - RHABDOMYOLYSIS [None]
